FAERS Safety Report 4464030-6 (Version None)
Quarter: 2004Q3

REPORT INFORMATION
  Report Type: 
  Country: None (occurrence: None)
  Receive Date: 20040928
  Receipt Date: 20040928
  Transmission Date: 20050211
  Serious: Yes (Death)
  Sender: FDA-Public Use
  Company Number: None

PATIENT
  Sex: Female

DRUGS (2)
  1. FLUDARIBINE [Suspect]
     Indication: NEOPLASM
  2. CYCLOPHOSPHAMIDE [Suspect]
     Indication: NEOPLASM

REACTIONS (1)
  - LUNG DISORDER [None]
